FAERS Safety Report 25206165 (Version 1)
Quarter: 2025Q2

REPORT INFORMATION
  Report Type: Spontaneous
  Country: CN (occurrence: CN)
  Receive Date: 20250417
  Receipt Date: 20250417
  Transmission Date: 20250717
  Serious: Yes (Hospitalization, Disabling, Other)
  Sender: JOHNSON AND JOHNSON
  Company Number: CN-BAYER-2025A051759

PATIENT
  Age: 66 Year
  Sex: Male

DRUGS (1)
  1. XARELTO [Suspect]
     Active Substance: RIVAROXABAN
     Indication: Atrial fibrillation
     Dosage: 10 MG, BID
     Route: 048
     Dates: start: 20240701, end: 20250414

REACTIONS (9)
  - Cerebral haematoma [Unknown]
  - Cerebral haemorrhage [Unknown]
  - Headache [Unknown]
  - Prescribed underdose [Unknown]
  - Underdose [Unknown]
  - Inappropriate schedule of product administration [Unknown]
  - Product prescribing issue [Unknown]
  - Eye swelling [Unknown]
  - Dizziness [Unknown]

NARRATIVE: CASE EVENT DATE: 20240701
